FAERS Safety Report 11654093 (Version 4)
Quarter: 2016Q3

REPORT INFORMATION
  Report Type: Report from Study
  Country: US (occurrence: US)
  Receive Date: 20151023
  Receipt Date: 20160721
  Transmission Date: 20161109
  Serious: Yes (Other)
  Sender: FDA-Public Use
  Company Number: US-AMGEN-USASL2015109138

PATIENT
  Age: 56 Year
  Sex: Female

DRUGS (2)
  1. ENBREL [Suspect]
     Active Substance: ETANERCEPT
     Indication: PSORIASIS
  2. ENBREL [Suspect]
     Active Substance: ETANERCEPT
     Indication: RHEUMATOID ARTHRITIS
     Dosage: 25 MG, TWICE WEEKLY
     Route: 058
     Dates: start: 20100501, end: 201604

REACTIONS (9)
  - Erythema [Unknown]
  - Frustration tolerance decreased [Unknown]
  - Hip arthroplasty [Unknown]
  - Hypersensitivity [Unknown]
  - Pruritus [Unknown]
  - Intentional product misuse [Unknown]
  - Unevaluable event [Unknown]
  - Skin swelling [Unknown]
  - Impaired work ability [Unknown]

NARRATIVE: CASE EVENT DATE: 2014
